FAERS Safety Report 23471349 (Version 8)
Quarter: 2024Q3

REPORT INFORMATION
  Report Type: Report from Study
  Country: CA (occurrence: CA)
  Receive Date: 20240202
  Receipt Date: 20240906
  Transmission Date: 20241017
  Serious: Yes (Hospitalization)
  Sender: GLAXOSMITHKLINE
  Company Number: CA-GLAXOSMITHKLINE-CA2023078996

PATIENT

DRUGS (10)
  1. MEPOLIZUMAB [Suspect]
     Active Substance: MEPOLIZUMAB
     Indication: Asthma
     Dosage: 100 MG, Q4W
     Route: 058
     Dates: start: 20230406
  2. MEPOLIZUMAB [Suspect]
     Active Substance: MEPOLIZUMAB
  3. MEPOLIZUMAB [Suspect]
     Active Substance: MEPOLIZUMAB
     Indication: Asthma
     Dosage: 100 MG, Q4W
     Route: 058
  4. MEPOLIZUMAB [Suspect]
     Active Substance: MEPOLIZUMAB
  5. MEPOLIZUMAB [Suspect]
     Active Substance: MEPOLIZUMAB
     Indication: Asthma
     Dosage: 100 MG, Q4W
     Route: 058
  6. MEPOLIZUMAB [Suspect]
     Active Substance: MEPOLIZUMAB
  7. MEPOLIZUMAB [Suspect]
     Active Substance: MEPOLIZUMAB
     Indication: Asthma
     Dosage: 100 MG, Q4W
     Route: 058
  8. MEPOLIZUMAB [Suspect]
     Active Substance: MEPOLIZUMAB
  9. MEPOLIZUMAB [Suspect]
     Active Substance: MEPOLIZUMAB
     Indication: Asthma
     Dosage: 100 MG, Q4W
     Route: 058
  10. CEFADROXIL [Concomitant]
     Active Substance: CEFADROXIL
     Indication: Product used for unknown indication
     Dosage: 500 MG, BID

REACTIONS (29)
  - Asthma [Recovered/Resolved]
  - Dyspnoea [Not Recovered/Not Resolved]
  - Hospitalisation [Not Recovered/Not Resolved]
  - Chronic obstructive pulmonary disease [Unknown]
  - Emphysema [Unknown]
  - Total lung capacity abnormal [Unknown]
  - Respiratory disorder [Recovering/Resolving]
  - Chest pain [Unknown]
  - Hot flush [Unknown]
  - Wheezing [Unknown]
  - Oxygen saturation decreased [Unknown]
  - Decreased appetite [Unknown]
  - Weight decreased [Unknown]
  - Peripheral swelling [Unknown]
  - Fatigue [Unknown]
  - Asthenia [Unknown]
  - Psychiatric symptom [Unknown]
  - Mobility decreased [Unknown]
  - Herpes zoster [Not Recovered/Not Resolved]
  - Rash [Not Recovered/Not Resolved]
  - Blister [Unknown]
  - Pain [Unknown]
  - Oedema peripheral [Recovering/Resolving]
  - Wound [Unknown]
  - Blood pressure decreased [Unknown]
  - Localised infection [Unknown]
  - Dry skin [Not Recovered/Not Resolved]
  - Cyanosis [Recovering/Resolving]
  - Drug ineffective [Unknown]

NARRATIVE: CASE EVENT DATE: 20230726
